FAERS Safety Report 5122557-8 (Version None)
Quarter: 2006Q4

REPORT INFORMATION
  Report Type: 
  Country: None (occurrence: None)
  Receive Date: 20061009
  Receipt Date: 20060928
  Transmission Date: 20070319
  Serious: Yes (Hospitalization, Other)
  Sender: FDA-Public Use
  Company Number: US-JNJFOC-20060803761

PATIENT
  Sex: Female
  Weight: 87.09 kg

DRUGS (5)
  1. REMICADE [Suspect]
     Indication: RHEUMATOID ARTHRITIS
     Route: 042
  2. HUMIRA [Suspect]
     Indication: DRUG USE FOR UNKNOWN INDICATION
  3. MULTIVITAMIN [Concomitant]
  4. SYNTHROID [Concomitant]
     Indication: HYPOTHYROIDISM
  5. VITAMIN D [Concomitant]

REACTIONS (4)
  - COLON CANCER [None]
  - METASTASES TO PERITONEUM [None]
  - METASTATIC NEOPLASM [None]
  - WEIGHT DECREASED [None]
